FAERS Safety Report 5275782-X (Version None)
Quarter: 2007Q1

REPORT INFORMATION
  Report Type: 
  Country: None (occurrence: None)
  Receive Date: 20070326
  Receipt Date: 20070316
  Transmission Date: 20070707
  Serious: Yes (Other)
  Sender: FDA-Public Use
  Company Number: GB-GLAXOSMITHKLINE-B0462292A

PATIENT
  Age: 61 Year
  Sex: Male

DRUGS (4)
  1. AVODART [Suspect]
     Indication: BENIGN PROSTATIC HYPERPLASIA
     Dosage: 1TAB PER DAY
     Route: 048
     Dates: start: 20061101
  2. ASPIRIN [Concomitant]
  3. LOVASTATIN [Concomitant]
  4. AMLODIPINE [Concomitant]

REACTIONS (2)
  - DYSKINESIA [None]
  - NEOPLASM [None]
